FAERS Safety Report 10428667 (Version 2)
Quarter: 2014Q3

REPORT INFORMATION
  Report Type: Spontaneous
  Country: ZA (occurrence: ZA)
  Receive Date: 20140903
  Receipt Date: 20140926
  Transmission Date: 20150326
  Serious: Yes (Other)
  Sender: FDA-Public Use
  Company Number: PHHY2014ZA109114

PATIENT
  Age: 68 Year
  Sex: Male
  Weight: 78 kg

DRUGS (1)
  1. ACLASTA [Suspect]
     Active Substance: ZOLEDRONIC ACID
     Indication: OSTEOPOROSIS
     Dosage: 5 MG/100 ML
     Route: 042
     Dates: start: 201403

REACTIONS (14)
  - Gait disturbance [Unknown]
  - Rhabdomyolysis [Unknown]
  - Movement disorder [Unknown]
  - Hepatic enzyme increased [Unknown]
  - Muscle enzyme increased [Unknown]
  - Fall [Unknown]
  - Gastrointestinal disorder [Unknown]
  - Aphagia [Unknown]
  - Polymyositis [Not Recovered/Not Resolved]
  - Dysphagia [Unknown]
  - Myalgia [Unknown]
  - Arthralgia [Unknown]
  - Paralysis [Unknown]
  - Asthenia [Not Recovered/Not Resolved]

NARRATIVE: CASE EVENT DATE: 201403
